FAERS Safety Report 25828040 (Version 1)
Quarter: 2025Q3

REPORT INFORMATION
  Report Type: Report from Study
  Country: US (occurrence: US)
  Receive Date: 20250921
  Receipt Date: 20250921
  Transmission Date: 20251020
  Serious: Yes (Other)
  Sender: UCB
  Company Number: US-UCBSA-2025057888

PATIENT
  Age: 38 Year
  Sex: Male

DRUGS (12)
  1. LACOSAMIDE [Suspect]
     Active Substance: LACOSAMIDE
     Indication: Focal dyscognitive seizures
     Dosage: 200 MILLIGRAM, 2X/DAY (BID)
     Route: 048
     Dates: end: 20250222
  2. LACOSAMIDE [Suspect]
     Active Substance: LACOSAMIDE
     Indication: Frontal lobe epilepsy
  3. LACOSAMIDE [Suspect]
     Active Substance: LACOSAMIDE
     Indication: Temporal lobe epilepsy
  4. LACOSAMIDE [Suspect]
     Active Substance: LACOSAMIDE
     Indication: Seizure
  5. KEPPRA [Suspect]
     Active Substance: LEVETIRACETAM
     Indication: Focal dyscognitive seizures
     Dosage: 1000 MILLIGRAM, 2X/DAY (BID)
     Route: 048
  6. KEPPRA [Suspect]
     Active Substance: LEVETIRACETAM
     Indication: Frontal lobe epilepsy
     Dosage: 500 MILLIGRAM, 2X/DAY (BID)
     Route: 048
  7. KEPPRA [Suspect]
     Active Substance: LEVETIRACETAM
     Indication: Temporal lobe epilepsy
  8. KEPPRA [Suspect]
     Active Substance: LEVETIRACETAM
     Indication: Seizure
  9. XCOPRI [Concomitant]
     Active Substance: CENOBAMATE
     Indication: Focal dyscognitive seizures
     Dosage: 100 MILLIGRAM, ONCE DAILY (QD)
     Route: 048
     Dates: end: 20250222
  10. XCOPRI [Concomitant]
     Active Substance: CENOBAMATE
     Indication: Frontal lobe epilepsy
  11. XCOPRI [Concomitant]
     Active Substance: CENOBAMATE
     Indication: Temporal lobe epilepsy
  12. XCOPRI [Concomitant]
     Active Substance: CENOBAMATE
     Indication: Seizure

REACTIONS (6)
  - Seizure [Unknown]
  - Insomnia [Unknown]
  - Stress [Unknown]
  - Blood pressure increased [Unknown]
  - Multiple-drug resistance [Unknown]
  - Drug ineffective [Unknown]

NARRATIVE: CASE EVENT DATE: 20231001
